FAERS Safety Report 10203103 (Version 2)
Quarter: 2014Q2

REPORT INFORMATION
  Report Type: Spontaneous
  Country: US (occurrence: US)
  Receive Date: 20140529
  Receipt Date: 20140617
  Transmission Date: 20141212
  Serious: Yes (Death, Other)
  Sender: FDA-Public Use
  Company Number: US-AMGEN-USASP2014038426

PATIENT
  Age: 86 Year
  Sex: Female
  Weight: 50.79 kg

DRUGS (1)
  1. PROLIA [Suspect]
     Indication: OSTEOPOROSIS POSTMENOPAUSAL
     Dosage: UNK UNK, Q6MO
     Route: 058
     Dates: start: 20130628

REACTIONS (5)
  - Sepsis [Fatal]
  - Mental status changes [Unknown]
  - Generalised tonic-clonic seizure [Unknown]
  - Hypotension [Unknown]
  - Lobar pneumonia [Unknown]
